FAERS Safety Report 10501350 (Version 1)
Quarter: 2014Q4

REPORT INFORMATION
  Report Type: Spontaneous
  Country: US (occurrence: None)
  Receive Date: 20141006
  Receipt Date: 20141006
  Transmission Date: 20150528
  Serious: No
  Sender: FDA-Public Use
  Company Number: None

PATIENT
  Age: 55 Year
  Sex: Female
  Weight: 59.88 kg

DRUGS (1)
  1. FORTEO [Suspect]
     Active Substance: TERIPARATIDE
     Indication: OSTEOPOROSIS
     Dosage: ONCE DAILY GIVEN INTO/UNDER THE SKIN

REACTIONS (2)
  - Headache [None]
  - Burning sensation [None]

NARRATIVE: CASE EVENT DATE: 20140826
